FAERS Safety Report 7580000-3 (Version None)
Quarter: 2011Q2

REPORT INFORMATION
  Report Type: 
  Country: None (occurrence: None)
  Receive Date: 20110629
  Receipt Date: 20110620
  Transmission Date: 20111010
  Serious: Yes (Death, Life-Threatening, Hospitalization)
  Sender: FDA-Public Use
  Company Number: JP-GENZYME-THYM-1002541

PATIENT
  Sex: Female
  Weight: 55 kg

DRUGS (20)
  1. CODEINE SULFATE [Concomitant]
     Indication: COUGH
     Dosage: UNK
     Route: 065
     Dates: start: 20100921, end: 20101108
  2. PANTETHINE [Concomitant]
     Indication: CONSTIPATION
     Dosage: UNK
     Route: 065
     Dates: start: 20101007, end: 20101108
  3. ACETAMINOPHEN [Concomitant]
     Indication: PYREXIA
     Dosage: UNK
     Route: 065
     Dates: start: 20100921, end: 20101025
  4. ZOPICLONE [Concomitant]
     Indication: INSOMNIA
     Dosage: UNK
     Route: 065
     Dates: start: 20100926, end: 20101107
  5. PREDNISOLONE [Concomitant]
     Indication: POLYMYOSITIS
     Dosage: UNK
     Route: 065
     Dates: start: 20100921, end: 20101108
  6. MAINTENANCE MEDIUM [Concomitant]
     Indication: FLUID REPLACEMENT
     Dosage: UNK
     Route: 065
     Dates: start: 20100921, end: 20101109
  7. ITRACONAZOLE [Concomitant]
     Indication: ANTIFUNGAL PROPHYLAXIS
     Dosage: UNK
     Route: 065
     Dates: start: 20100921, end: 20101016
  8. RED BLOOD CELLS [Concomitant]
     Indication: APLASTIC ANAEMIA
     Dosage: UNK
     Route: 065
     Dates: start: 20101105, end: 20101107
  9. GRANULOCYTE COLONY STIMULATING FACTOR [Concomitant]
     Indication: APLASTIC ANAEMIA
     Dosage: UNK
     Route: 065
     Dates: start: 20100922
  10. FILGRASTIM [Concomitant]
     Indication: APLASTIC ANAEMIA
     Dosage: UNK
     Route: 065
     Dates: start: 20100921, end: 20101108
  11. THYMOGLOBULIN [Suspect]
     Indication: APLASTIC ANAEMIA
     Dosage: 135 MG, QD
     Route: 042
     Dates: start: 20101004, end: 20101008
  12. CYCLOSPORINE [Concomitant]
     Indication: APLASTIC ANAEMIA
     Dosage: UNK
     Route: 065
     Dates: start: 20101004, end: 20101108
  13. MAGNESIUM OXIDE [Concomitant]
     Indication: CONSTIPATION
     Dosage: UNK
     Route: 065
     Dates: start: 20101007, end: 20101108
  14. REBAMIPIDE [Concomitant]
     Indication: GASTRIC ULCER
     Dosage: UNK
     Route: 065
     Dates: start: 20101009, end: 20101108
  15. FUROSEMIDE [Concomitant]
     Indication: OEDEMA
     Dosage: UNK
     Route: 065
     Dates: start: 20101105, end: 20101108
  16. OMEPRAZOLE [Concomitant]
     Indication: GASTRIC ULCER
     Dosage: UNK
     Route: 065
     Dates: start: 20100922, end: 20101108
  17. MEROPENEM [Concomitant]
     Indication: SEPSIS
     Dosage: UNK
     Route: 065
     Dates: start: 20100921, end: 20101013
  18. CHLORPHENIRAMINE MALEATE [Concomitant]
     Indication: DRUG HYPERSENSITIVITY
     Dosage: UNK
     Route: 065
     Dates: start: 20100921, end: 20101108
  19. METHYLPREDNISOLONE SODIUM SUCCINATE [Concomitant]
     Indication: APLASTIC ANAEMIA
     Dosage: UNK
     Route: 065
     Dates: start: 20101004, end: 20101008
  20. PLATELETS [Concomitant]
     Indication: APLASTIC ANAEMIA
     Dosage: UNK
     Route: 065
     Dates: start: 20100921, end: 20101108

REACTIONS (5)
  - PULMONARY MYCOSIS [None]
  - CELLULITIS [None]
  - INTERSTITIAL LUNG DISEASE [None]
  - ANAPHYLACTOID REACTION [None]
  - APLASTIC ANAEMIA [None]
